FAERS Safety Report 6669609-9 (Version None)
Quarter: 2010Q2

REPORT INFORMATION
  Report Type: 
  Country: None (occurrence: None)
  Receive Date: 20100406
  Receipt Date: 20100326
  Transmission Date: 20101027
  Serious: Yes (Death)
  Sender: FDA-Public Use
  Company Number: US-BAXTER-2010BH006283

PATIENT
  Age: 16 Month
  Sex: Female

DRUGS (11)
  1. DIANEAL [Suspect]
     Indication: PERITONEAL DIALYSIS
     Route: 033
     Dates: end: 20100305
  2. CALCIUM CARBONATE [Concomitant]
  3. ENALAPRIL MALEATE [Concomitant]
  4. HYDROMORPHONE HCL [Concomitant]
  5. LEVOCARNITINE [Concomitant]
  6. PREDNISOLONE [Concomitant]
  7. PYRIDOXINE HCL [Concomitant]
  8. RIBOFLAVIN TAB [Concomitant]
  9. THIAMINE [Concomitant]
  10. UBIQUINONE [Concomitant]
  11. EPOGEN [Concomitant]

REACTIONS (1)
  - CONGENITAL MITOCHONDRIAL CYTOPATHY [None]
